FAERS Safety Report 8194195-4 (Version None)
Quarter: 2012Q1

REPORT INFORMATION
  Report Type: 
  Country: None (occurrence: None)
  Receive Date: 20120308
  Receipt Date: 20120223
  Transmission Date: 20120608
  Serious: Yes (Death, Hospitalization)
  Sender: FDA-Public Use
  Company Number: FR-INCYTE CORPORATION-2012IN000300

PATIENT
  Sex: Male
  Weight: 175 kg

DRUGS (1)
  1. INC424 [Suspect]
     Dosage: 20 MG, BID
     Route: 048
     Dates: start: 20120201

REACTIONS (2)
  - SEPTIC SHOCK [None]
  - CARDIAC FAILURE [None]
